FAERS Safety Report 10251612 (Version 1)
Quarter: 2014Q2

REPORT INFORMATION
  Report Type: Spontaneous
  Country: CN (occurrence: CN)
  Receive Date: 20140623
  Receipt Date: 20140623
  Transmission Date: 20141212
  Serious: Yes (Hospitalization)
  Sender: FDA-Public Use
  Company Number: CN-ROCHE-1421961

PATIENT
  Age: 55 Year
  Sex: Female
  Weight: 65 kg

DRUGS (3)
  1. MABTHERA [Suspect]
     Indication: THROMBOCYTOPENIA
     Route: 041
     Dates: start: 20121115, end: 20121205
  2. MEDROL [Concomitant]
     Indication: THROMBOCYTOPENIA
     Dosage: 4 MG/D
     Route: 048
     Dates: end: 20130201
  3. MEDROL [Concomitant]
     Dosage: 40 MG/D
     Route: 048

REACTIONS (1)
  - Interstitial lung disease [Recovering/Resolving]
